FAERS Safety Report 12628070 (Version 2)
Quarter: 2016Q3

REPORT INFORMATION
  Report Type: Spontaneous
  Country: DE (occurrence: DE)
  Receive Date: 20160808
  Receipt Date: 20160909
  Transmission Date: 20161109
  Serious: Yes (Hospitalization, Other)
  Sender: FDA-Public Use
  Company Number: DE-ROCHE-1808839

PATIENT
  Age: 72 Year
  Sex: Female
  Weight: 101 kg

DRUGS (6)
  1. RANITIDIN [Concomitant]
     Active Substance: RANITIDINE HYDROCHLORIDE
     Route: 042
  2. PERJETA [Suspect]
     Active Substance: PERTUZUMAB
     Indication: BREAST CANCER METASTATIC
     Dosage: NEOADJUVANT SCHEME
     Route: 042
     Dates: start: 20160530, end: 20160822
  3. ZOFRAN [Concomitant]
     Active Substance: ONDANSETRON HYDROCHLORIDE
     Route: 042
  4. HERCEPTIN [Concomitant]
     Active Substance: TRASTUZUMAB
     Indication: BREAST CANCER METASTATIC
     Dosage: NEOADJUVANT SCHEME
     Route: 042
     Dates: start: 20160530
  5. DEXAMETHASON [Concomitant]
     Active Substance: DEXAMETHASONE
     Route: 042
  6. PACLITAXEL. [Concomitant]
     Active Substance: PACLITAXEL
     Indication: BREAST CANCER METASTATIC
     Dosage: NEOADJUVANT SCHEME
     Route: 042
     Dates: start: 20160530

REACTIONS (10)
  - Chills [Recovered/Resolved]
  - Nausea [Recovered/Resolved]
  - Eczema [Recovered/Resolved]
  - Discomfort [Recovered/Resolved]
  - Pyrexia [Recovered/Resolved]
  - Inflammation [Recovered/Resolved]
  - C-reactive protein increased [Recovered/Resolved]
  - Off label use [Unknown]
  - Dyspnoea [Recovered/Resolved]
  - Vomiting [Recovered/Resolved]

NARRATIVE: CASE EVENT DATE: 20160801
